FAERS Safety Report 8281635-5 (Version None)
Quarter: 2012Q2

REPORT INFORMATION
  Report Type: 
  Country: None (occurrence: None)
  Receive Date: 20120413
  Receipt Date: 20120404
  Transmission Date: 20120825
  Serious: Yes (Hospitalization)
  Sender: FDA-Public Use
  Company Number: IT-PFIZER INC-2011275350

PATIENT
  Age: 83 Year
  Sex: Male

DRUGS (9)
  1. RAMIPRIL [Suspect]
     Indication: HYPERTENSION
     Dosage: 10 MG, ONCE
     Route: 048
     Dates: start: 20111007, end: 20111007
  2. CASODEX [Concomitant]
     Dosage: UNK
  3. METFORMIN HYDROCHLORIDE [Concomitant]
     Indication: TYPE 2 DIABETES MELLITUS
     Dosage: 2 UNITS, 1X/DAY
     Route: 048
  4. WARFARIN SODIUM [Concomitant]
     Indication: ATRIAL FIBRILLATION
     Dosage: 5 MG, 1X/DAY
     Route: 048
  5. AMITRIPTYLINE HCL [Concomitant]
     Dosage: UNK
  6. RAMIPRIL [Suspect]
     Dosage: 5 MG, DAILY
     Route: 048
     Dates: start: 20100601, end: 20111006
  7. ALLOPURINOL [Concomitant]
     Dosage: UNK
  8. TAMSULOSIN HYDROCHLORIDE [Concomitant]
     Dosage: 1 UNIT, 1X/DAY
     Route: 048
  9. SPIRONOLACTONE [Concomitant]
     Dosage: UNK
     Route: 048

REACTIONS (7)
  - DRUG ADMINISTRATION ERROR [None]
  - SYNCOPE [None]
  - BLOOD UREA INCREASED [None]
  - HYPERKALAEMIA [None]
  - HAEMOGLOBIN DECREASED [None]
  - BLOOD CREATININE INCREASED [None]
  - HYPOTENSION [None]
